FAERS Safety Report 12672356 (Version 1)
Quarter: 2016Q3

REPORT INFORMATION
  Report Type: Spontaneous
  Country: US (occurrence: US)
  Receive Date: 20160822
  Receipt Date: 20160822
  Transmission Date: 20161109
  Serious: No
  Sender: FDA-Public Use
  Company Number: US-JNJFOC-20160814779

PATIENT
  Age: 67 Year
  Sex: Female
  Weight: 77.11 kg

DRUGS (7)
  1. VITAMIN C [Concomitant]
     Active Substance: ASCORBIC ACID
     Indication: ROUTINE HEALTH MAINTENANCE
     Dosage: DAILY
     Route: 065
  2. CINNAMON. [Concomitant]
     Active Substance: CINNAMON
     Indication: ROUTINE HEALTH MAINTENANCE
     Dosage: DAILY
     Route: 065
  3. LISINOPRIL. [Concomitant]
     Active Substance: LISINOPRIL
     Indication: HYPERTENSION
     Dosage: DAILY
     Route: 065
  4. BABY ASPIRIN [Concomitant]
     Active Substance: ASPIRIN
     Indication: CARDIAC DISORDER
     Dosage: DAILY
     Route: 065
  5. VITAMIN B COMPLEX [Concomitant]
     Active Substance: CYANOCOBALAMIN\DEXPANTHENOL\NIACINAMIDE\PYRIDOXINE HYDROCHLORIDE\RIBOFLAVIN 5^-PHOSPHATE SODIUM\THIAMINE HYDROCHLORIDE\VITAMIN B COMPLEX
     Indication: ROUTINE HEALTH MAINTENANCE
     Dosage: DAILY
     Route: 065
  6. WOMENS ROGAINE [Suspect]
     Active Substance: MINOXIDIL
     Route: 061
  7. WOMENS ROGAINE [Suspect]
     Active Substance: MINOXIDIL
     Indication: ALOPECIA
     Route: 061

REACTIONS (8)
  - Erythema [Not Recovered/Not Resolved]
  - Feeling abnormal [Not Recovered/Not Resolved]
  - Underdose [Not Recovered/Not Resolved]
  - Application site discolouration [Not Recovered/Not Resolved]
  - Sunburn [Not Recovered/Not Resolved]
  - Skin exfoliation [Not Recovered/Not Resolved]
  - Drug administration error [Not Recovered/Not Resolved]
  - Application site discharge [Not Recovered/Not Resolved]

NARRATIVE: CASE EVENT DATE: 20160814
